FAERS Safety Report 6007349-X (Version None)
Quarter: 2008Q4

REPORT INFORMATION
  Report Type: 
  Country: None (occurrence: None)
  Receive Date: 20081217
  Receipt Date: 20080314
  Transmission Date: 20090506
  Serious: No
  Sender: FDA-Public Use
  Company Number: US-ASTRAZENECA-2008UW05222

PATIENT
  Age: 64 Year
  Sex: Female
  Weight: 88.5 kg

DRUGS (6)
  1. CRESTOR [Suspect]
     Route: 048
     Dates: start: 20080201
  2. LISINOPRIL [Concomitant]
  3. ZEGERIT [Concomitant]
  4. METOPROLOL TARTRATE [Concomitant]
  5. LORAZEPAM [Concomitant]
     Indication: SLEEP DISORDER
  6. FISH OIL [Concomitant]

REACTIONS (3)
  - ASTHENIA [None]
  - DIARRHOEA [None]
  - PAIN [None]
